FAERS Safety Report 8999969 (Version 2)
Quarter: 2013Q1

REPORT INFORMATION
  Report Type: Spontaneous
  Country: DK (occurrence: DK)
  Receive Date: 20130102
  Receipt Date: 20130107
  Transmission Date: 20140127
  Serious: Yes (Other)
  Sender: FDA-Public Use
  Company Number: DK-SANOFI-AVENTIS-2012SA094939

PATIENT
  Age: 72 Year
  Sex: Male

DRUGS (3)
  1. PLAVIX [Suspect]
     Indication: PRODUCT USED FOR UNKNOWN INDICATION
     Route: 065
  2. WARFARIN [Concomitant]
     Indication: ATRIAL FIBRILLATION
  3. MAGNYL /OLD FORM/ ^DAK^ [Concomitant]
     Indication: MYOCARDIAL ISCHAEMIA

REACTIONS (1)
  - Monoplegia [Not Recovered/Not Resolved]
